FAERS Safety Report 20068045 (Version 1)
Quarter: 2021Q4

REPORT INFORMATION
  Report Type: Spontaneous
  Country: US (occurrence: None)
  Receive Date: 20211112
  Receipt Date: 20211112
  Transmission Date: 20220303
  Serious: Yes (Hospitalization, Other)
  Sender: FDA-Public Use
  Company Number: None

PATIENT
  Age: 52 Year
  Sex: Male
  Weight: 111.15 kg

DRUGS (1)
  1. REGEN-COV [Suspect]
     Active Substance: CASIRIVIMAB\IMDEVIMAB
     Indication: SARS-CoV-2 antibody test positive
     Route: 042
     Dates: start: 20211112, end: 20211112

REACTIONS (8)
  - Back pain [None]
  - Infusion related reaction [None]
  - Muscle spasms [None]
  - Tremor [None]
  - Muscle spasms [None]
  - Livedo reticularis [None]
  - Hypopnoea [None]
  - Moaning [None]

NARRATIVE: CASE EVENT DATE: 20211112
